FAERS Safety Report 9276982 (Version 1)
Quarter: 2013Q2

REPORT INFORMATION
  Report Type: Spontaneous
  Country: US (occurrence: None)
  Receive Date: 20130501
  Receipt Date: 20130501
  Transmission Date: 20140414
  Serious: Yes (Hospitalization, Other)
  Sender: FDA-Public Use
  Company Number: 2013P1004920

PATIENT
  Age: 54 Year
  Sex: Female

DRUGS (1)
  1. SULFAMETHOXAZOLE AND TRIMETHOPRIM [Suspect]
     Indication: URINARY TRACT INFECTION
     Dates: start: 201106

REACTIONS (10)
  - Lobar pneumonia [None]
  - Pancytopenia [None]
  - Renal failure acute [None]
  - Hepatic failure [None]
  - Coagulopathy [None]
  - Hypotension [None]
  - Sepsis [None]
  - Disseminated intravascular coagulation [None]
  - Human ehrlichiosis [None]
  - Mental impairment [None]
